FAERS Safety Report 6969550-8 (Version None)
Quarter: 2010Q3

REPORT INFORMATION
  Report Type: 
  Country: None (occurrence: None)
  Receive Date: 20100907
  Receipt Date: 20100824
  Transmission Date: 20110219
  Serious: Yes (Other)
  Sender: FDA-Public Use
  Company Number: PHHY2010BR56641

PATIENT
  Age: 73 Year
  Sex: Female

DRUGS (1)
  1. DIOVAN [Suspect]
     Indication: HYPERTENSION
     Dosage: 160 MG, QD

REACTIONS (5)
  - BLINDNESS [None]
  - CATARACT OPERATION [None]
  - DIABETES MELLITUS [None]
  - EYE LASER SURGERY [None]
  - INFARCTION [None]
